FAERS Safety Report 9593619 (Version 1)
Quarter: 2013Q3

REPORT INFORMATION
  Report Type: Spontaneous
  Country: US (occurrence: None)
  Receive Date: 20130930
  Receipt Date: 20130930
  Transmission Date: 20140515
  Serious: No
  Sender: FDA-Public Use
  Company Number: 1000048151

PATIENT
  Age: 87 None
  Sex: Female

DRUGS (6)
  1. LINACLOTIDE [Suspect]
     Indication: CONSTIPATION
     Dates: start: 20130823
  2. SYNTHRIOD (LEVOTHYROXINE) [Concomitant]
  3. XARELTO (RIVAROXABAN) [Concomitant]
  4. BABY ASPIRIN (ACETYLSALICYLIC ACID) [Concomitant]
  5. VITAMIN D [Concomitant]
  6. EDARBI (AZILSARTAN KAMEDOXOMIL) [Concomitant]

REACTIONS (1)
  - Diarrhoea [None]
